FAERS Safety Report 4638610-9 (Version None)
Quarter: 2005Q2

REPORT INFORMATION
  Report Type: 
  Country: None (occurrence: None)
  Receive Date: 20050325
  Receipt Date: 20041221
  Transmission Date: 20051028
  Serious: No
  Sender: FDA-Public Use
  Company Number: USA041184263

PATIENT
  Age: 82 Year
  Sex: Female

DRUGS (9)
  1. FORTEO [Suspect]
     Indication: OSTEOPOROSIS
     Dosage: 20 UG/1 DAY
     Dates: start: 20041029, end: 20040101
  2. AVALIDE [Concomitant]
  3. ATENOLOL [Concomitant]
  4. CLONIDINE HCL [Concomitant]
  5. ZOCOR (SIMVASTATIN RATIOPHARM) [Concomitant]
  6. PRILOSEC (OMEPRAZOLE RATIOPHARM) [Concomitant]
  7. NEXIUM [Concomitant]
  8. ASPIRIN [Concomitant]
  9. ALEVE [Concomitant]

REACTIONS (6)
  - ASTHENIA [None]
  - COLD SWEAT [None]
  - DIZZINESS [None]
  - FLATULENCE [None]
  - GASTROOESOPHAGEAL REFLUX DISEASE [None]
  - VOMITING [None]
